FAERS Safety Report 18388237 (Version 1)
Quarter: 2020Q4

REPORT INFORMATION
  Report Type: Spontaneous
  Country: FR (occurrence: FR)
  Receive Date: 20201015
  Receipt Date: 20201015
  Transmission Date: 20210114
  Serious: Yes (Hospitalization)
  Sender: FDA-Public Use
  Company Number: FR-MYLANLABS-2020M1086046

PATIENT
  Age: 42 Year
  Sex: Female
  Weight: 89 kg

DRUGS (2)
  1. VANCOMYCIN MYLAN [Suspect]
     Active Substance: VANCOMYCIN
     Indication: STAPHYLOCOCCAL BACTERAEMIA
     Dosage: 1500 MILLIGRAM, TOTAL
     Route: 042
     Dates: start: 20200911, end: 20200911
  2. OXACILLINE [Concomitant]
     Active Substance: OXACILLIN SODIUM
     Dosage: UNK

REACTIONS (2)
  - Burning sensation [Recovered/Resolved]
  - Pruritus [Recovered/Resolved]

NARRATIVE: CASE EVENT DATE: 20200911
